FAERS Safety Report 10950147 (Version 4)
Quarter: 2015Q3

REPORT INFORMATION
  Report Type: Spontaneous
  Country: JP (occurrence: JP)
  Receive Date: 20150324
  Receipt Date: 20150713
  Transmission Date: 20151125
  Serious: Yes (Death, Hospitalization)
  Sender: FDA-Public Use
  Company Number: JP-CELGENE-JPN-2015034499

PATIENT
  Age: 74 Year
  Sex: Male
  Weight: 49 kg

DRUGS (5)
  1. OXYCONTIN [Concomitant]
     Active Substance: OXYCODONE HYDROCHLORIDE
     Indication: PRODUCT USED FOR UNKNOWN INDICATION
     Route: 048
     Dates: start: 20150312, end: 20150313
  2. OXINORM [Concomitant]
     Active Substance: OXYCODONE HYDROCHLORIDE
     Indication: PRODUCT USED FOR UNKNOWN INDICATION
     Route: 048
     Dates: start: 20150312, end: 20150313
  3. LOXONIN [Concomitant]
     Active Substance: LOXOPROFEN SODIUM
     Indication: PRODUCT USED FOR UNKNOWN INDICATION
     Route: 048
     Dates: start: 20150307, end: 20150311
  4. ABRAXANE [Suspect]
     Active Substance: PACLITAXEL
     Indication: METASTATIC GASTRIC CANCER
     Dosage: 260 MILLIGRAM/SQ. METER
     Route: 041
     Dates: start: 20150309, end: 20150309
  5. LASIX [Concomitant]
     Active Substance: FUROSEMIDE
     Indication: OEDEMA DUE TO RENAL DISEASE
     Route: 048
     Dates: start: 20150307, end: 20150313

REACTIONS (6)
  - Pancytopenia [Fatal]
  - Pneumonia aspiration [Unknown]
  - Vomiting [Unknown]
  - Sepsis [Fatal]
  - Metastatic gastric cancer [Fatal]
  - Febrile neutropenia [Fatal]

NARRATIVE: CASE EVENT DATE: 20150313
